FAERS Safety Report 24124156 (Version 2)
Quarter: 2024Q3

REPORT INFORMATION
  Report Type: Spontaneous
  Country: US (occurrence: US)
  Receive Date: 20240723
  Receipt Date: 20240806
  Transmission Date: 20241017
  Serious: Yes (Other)
  Sender: UCB
  Company Number: US-UCBSA-2024036210

PATIENT
  Sex: Male
  Weight: 69 kg

DRUGS (24)
  1. LEVETIRACETAM [Suspect]
     Active Substance: LEVETIRACETAM
     Indication: Product used for unknown indication
     Dosage: LEVETIRACETAM ER 1500 MILLIGRAM DAILY
  2. ACETAMINOPHEN [Concomitant]
     Active Substance: ACETAMINOPHEN
     Indication: Product used for unknown indication
     Dosage: 2 TABLET AS NEEDED EV 6 HRS
     Route: 048
  3. AMLODIPINE BESYLATE [Concomitant]
     Active Substance: AMLODIPINE BESYLATE
     Indication: Product used for unknown indication
     Dosage: 10 MILLIGRAM, ONCE DAILY (QD) IN EVENING
     Route: 048
  4. ASPIRIN [Concomitant]
     Active Substance: ASPIRIN
     Indication: Product used for unknown indication
     Dosage: 1 DOSAGE FORM, ONCE DAILY (QD)
     Route: 048
  5. DIAZEPAM [Concomitant]
     Active Substance: DIAZEPAM
     Indication: Product used for unknown indication
     Dosage: 2 DOSAGE FORM, ONCE DAILY (QD) AT BEDTIME
     Route: 048
  6. GABAPENTIN [Concomitant]
     Active Substance: GABAPENTIN
     Indication: Product used for unknown indication
     Dosage: 300 MG IN MORNING AND 600 MG IN EVENING
     Route: 048
  7. GABAPENTIN [Concomitant]
     Active Substance: GABAPENTIN
     Dosage: 300 MILLIGRAM, 2X/DAY (BID) MORNING AND EVENING
     Route: 048
  8. GUAIFENESIN [Concomitant]
     Active Substance: GUAIFENESIN
     Indication: Product used for unknown indication
     Dosage: 1200 MILLIGRAM,TABLET EXTENDED RELEASE 12 HOUR I TABLET AS NEEDED
     Route: 048
  9. LAMOTRIGINE [Concomitant]
     Active Substance: LAMOTRIGINE
     Indication: Product used for unknown indication
     Dosage: LAMOTRIGINE ER 250 MG DAILY
     Route: 048
  10. LAMOTRIGINE [Concomitant]
     Active Substance: LAMOTRIGINE
     Dosage: LAMOTRIGINE ER 25 MG DAILY
     Route: 048
  11. HYDRALAZINE HCL [Concomitant]
     Active Substance: HYDRALAZINE HYDROCHLORIDE
     Indication: Blood pressure increased
     Dosage: 1 DOSAGE FORM, 4X/DAY (QID) WITH FOOD PRN FOR BP } 160/90
     Route: 048
  12. LYSINE [Concomitant]
     Active Substance: LYSINE
     Indication: Blood pressure increased
     Dosage: 1000 MILLIGRAM DAILY
     Route: 048
  13. LYSINE [Concomitant]
     Active Substance: LYSINE
     Dosage: UNK
  14. LEVOMEFOLIC ACID [Concomitant]
     Active Substance: LEVOMEFOLIC ACID
     Indication: Blood pressure increased
     Dosage: 15 MILLIGRAM, ONCE DAILY (QD)
     Route: 048
  15. LEXAPRO [Concomitant]
     Active Substance: ESCITALOPRAM OXALATE
     Indication: Product used for unknown indication
     Dosage: 10 MILLIGRAM, ONCE DAILY (QD)
     Route: 048
  16. LORATADINE [Concomitant]
     Active Substance: LORATADINE
     Indication: Product used for unknown indication
     Dosage: 10 MILLIGRAM, ONCE DAILY (QD)
     Route: 048
  17. MELOXICAM [Concomitant]
     Active Substance: MELOXICAM
     Indication: Arthralgia
     Dosage: 1 DOSAGE FORM, AS NEEDED (PRN)
     Route: 048
  18. BACLOFEN [Concomitant]
     Active Substance: BACLOFEN
     Indication: Arthralgia
     Dosage: 10 MILLIGRAM, AS NEEDED (PRN)I TABLET WITH FOOD OR MILK
     Route: 048
  19. POTASSIUM AND MAGNESIUM ASPARAGINATE [Concomitant]
     Indication: Product used for unknown indication
     Dosage: 250 MILLIGRAM, ONCE DAILY (QD) WITH MEAL
     Route: 048
  20. POTASSIUM AND MAGNESIUM ASPARAGINATE [Concomitant]
     Indication: Product used for unknown indication
  21. ROSUVASTATIN CALCIUM [Concomitant]
     Active Substance: ROSUVASTATIN CALCIUM
     Indication: Product used for unknown indication
     Dosage: 20 MILLIGRAM, ONCE DAILY (QD)
     Route: 048
  22. VALACYCLOVIR HYDROCHLORIDE [Concomitant]
     Active Substance: VALACYCLOVIR HYDROCHLORIDE
     Indication: Product used for unknown indication
     Dosage: 500 MILLIGRAM, ONCE DAILY (QD)
     Route: 048
  23. VITAMIN C [Concomitant]
     Active Substance: ASCORBIC ACID
     Indication: Product used for unknown indication
     Dosage: 500 MILLIGRAM AS DIRECTED
     Route: 048
  24. ZINC [Concomitant]
     Active Substance: ZINC
     Indication: Product used for unknown indication
     Dosage: 50 MILLIGRAM, ONCE DAILY (QD)
     Route: 048

REACTIONS (1)
  - Seizure [Recovered/Resolved]
